FAERS Safety Report 6915836-2 (Version None)
Quarter: 2010Q3

REPORT INFORMATION
  Report Type: 
  Country: None (occurrence: None)
  Receive Date: 20100810
  Receipt Date: 20100712
  Transmission Date: 20110219
  Serious: No
  Sender: FDA-Public Use
  Company Number: A0864298A

PATIENT
  Age: 54 Year
  Sex: Female

DRUGS (15)
  1. PAXIL [Suspect]
     Dosage: 1TAB TWICE PER DAY
     Route: 048
     Dates: start: 20010101
  2. JANUVIA [Concomitant]
  3. FLEXERIL [Concomitant]
  4. TRICOR [Concomitant]
  5. ATENOLOL [Concomitant]
  6. HYDROCHLOROTHIAZIDE [Concomitant]
  7. WELLBUTRIN SR [Concomitant]
  8. ZYRTEC [Concomitant]
  9. NEXIUM [Concomitant]
  10. VITAMIN B-12 [Concomitant]
  11. MULTI-VITAMIN [Concomitant]
  12. ASPIRIN [Concomitant]
  13. CRESTOR [Concomitant]
  14. CELEBREX [Concomitant]
  15. NEURONTIN [Concomitant]

REACTIONS (4)
  - DIZZINESS [None]
  - HEADACHE [None]
  - NERVOUSNESS [None]
  - PSYCHOMOTOR HYPERACTIVITY [None]
